FAERS Safety Report 4360192-X (Version None)
Quarter: 2004Q2

REPORT INFORMATION
  Report Type: 
  Country: None (occurrence: None)
  Receive Date: 20040513
  Receipt Date: 20040505
  Transmission Date: 20050107
  Serious: Yes (Other)
  Sender: FDA-Public Use
  Company Number: US-JNJFOC-20040501428

PATIENT
  Age: 14 Year
  Sex: Female

DRUGS (4)
  1. TOPAMAX [Suspect]
     Indication: MIGRAINE
     Dosage: 50 MG, 2 IN 1 DAY, ORAL
     Route: 048
     Dates: start: 20030501
  2. TOPAMAX [Suspect]
     Indication: PARTIAL SEIZURES
     Dosage: 50 MG, 2 IN 1 DAY, ORAL
     Route: 048
     Dates: start: 20030501
  3. IBUPROFEN [Concomitant]
  4. FROVATRIPTAN ( ) PROMETHAZINE [Concomitant]

REACTIONS (3)
  - BLOOD CREATINE PHOSPHOKINASE INCREASED [None]
  - MYALGIA [None]
  - PAIN [None]
